FAERS Safety Report 8862922 (Version 5)
Quarter: 2013Q2

REPORT INFORMATION
  Report Type: Spontaneous
  Country: US (occurrence: US)
  Receive Date: 20121026
  Receipt Date: 20130509
  Transmission Date: 20140414
  Serious: Yes (Hospitalization, Disabling, Other)
  Sender: FDA-Public Use
  Company Number: US-009507513-1210USA010275

PATIENT
  Sex: Female
  Weight: 68.27 kg

DRUGS (7)
  1. FOSAMAX [Suspect]
     Indication: OSTEOPOROSIS
     Dosage: 10 MG, UNK
     Route: 048
     Dates: start: 20000405, end: 20070603
  2. FOSAMAX [Suspect]
     Indication: OSTEOPENIA
     Dosage: 70 MG, UNK
     Route: 048
     Dates: end: 20070603
  3. FOSAMAX PLUS D [Suspect]
     Indication: OSTEOPOROSIS
     Dosage: 70 MG/2800 IU, UNK
     Route: 048
     Dates: start: 20070604
  4. FOSAMAX PLUS D [Suspect]
     Indication: OSTEOPENIA
  5. VITAMINS (UNSPECIFIED) [Concomitant]
     Dosage: UNK, QD
     Dates: start: 1997
  6. CALCIUM (UNSPECIFIED) (+) MAGNESIUM (UNSPECIFIED) (+) CHOLECALCIFEROL [Concomitant]
     Dosage: UNK, QD
     Dates: start: 2000
  7. VAGIFEM [Concomitant]
     Indication: MENOPAUSE
     Dosage: UNK
     Dates: start: 20040401, end: 200404

REACTIONS (41)
  - Internal fixation of fracture [Unknown]
  - Internal fixation of fracture [Recovered/Resolved]
  - Low turnover osteopathy [Unknown]
  - Lower limb fracture [Unknown]
  - Hernia repair [Unknown]
  - Presyncope [Recovered/Resolved]
  - Orthostatic hypotension [Recovered/Resolved]
  - Orthostatic hypotension [Recovered/Resolved]
  - Metastatic neoplasm [Unknown]
  - Presyncope [Recovered/Resolved]
  - Knee operation [Unknown]
  - Ventricular tachycardia [Unknown]
  - Femur fracture [Not Recovered/Not Resolved]
  - Femur fracture [Recovered/Resolved]
  - Calcium deficiency [Unknown]
  - Hyperlipidaemia [Unknown]
  - Hypertension [Unknown]
  - Bacterial infection [Unknown]
  - Arthritis [Unknown]
  - Pain [Unknown]
  - Herpes virus infection [Unknown]
  - Cough [Unknown]
  - Bacterial infection [Unknown]
  - Bacterial infection [Unknown]
  - Carpal tunnel decompression [Unknown]
  - Bone disorder [Unknown]
  - Spinal column stenosis [Unknown]
  - Sternal fracture [Unknown]
  - Osteomyelitis [Unknown]
  - Osteoarthritis [Unknown]
  - Rheumatoid arthritis [Unknown]
  - Bacterial infection [Unknown]
  - Bursitis [Unknown]
  - Osteoarthritis [Unknown]
  - Adverse drug reaction [Unknown]
  - Lumbar spinal stenosis [Unknown]
  - Aneurysm [Unknown]
  - Polymyalgia rheumatica [Unknown]
  - Meniscus injury [Unknown]
  - Muscular weakness [Unknown]
  - Constipation [Unknown]
